FAERS Safety Report 9455830 (Version 2)
Quarter: 2013Q3

REPORT INFORMATION
  Report Type: Spontaneous
  Country: JP (occurrence: JP)
  Receive Date: 20130813
  Receipt Date: 20130826
  Transmission Date: 20140515
  Serious: Yes (Other)
  Sender: FDA-Public Use
  Company Number: JP-JNJFOC-20130804316

PATIENT
  Sex: 0

DRUGS (1)
  1. RISPERDAL [Suspect]
     Indication: INSOMNIA
     Dosage: AS-NEEDED
     Route: 048

REACTIONS (2)
  - Hypopnoea [Unknown]
  - Off label use [Unknown]
